FAERS Safety Report 7410744-5 (Version None)
Quarter: 2011Q2

REPORT INFORMATION
  Report Type: 
  Country: None (occurrence: None)
  Receive Date: 20110413
  Receipt Date: 20110406
  Transmission Date: 20111010
  Serious: Yes (Hospitalization)
  Sender: FDA-Public Use
  Company Number: US-BRISTOL-MYERS SQUIBB COMPANY-15518954

PATIENT
  Age: 68 Year
  Sex: Male
  Weight: 91 kg

DRUGS (17)
  1. SENNA [Concomitant]
  2. AMLODIPINE [Concomitant]
     Route: 048
  3. LOPERAMIDE [Concomitant]
     Indication: DIARRHOEA
  4. COLACE [Concomitant]
     Dosage: 1DF=1TAB
     Route: 048
  5. CLOTRIMAZOLE [Concomitant]
     Dosage: 1DF= ONE LOZENGE .CLOTRIMAZOLE 10 MG TROCHES,
     Route: 048
  6. FLUCONAZOLE [Concomitant]
     Route: 048
  7. LOMOTIL [Concomitant]
     Indication: DIARRHOEA
  8. ZOLPIDEM [Concomitant]
     Indication: INSOMNIA
     Route: 048
  9. IPILIMUMAB [Suspect]
     Indication: MALIGNANT MELANOMA
     Dosage: NO OF COURSES=3.
     Route: 042
     Dates: start: 20101208, end: 20110120
  10. TACROLIMUS [Concomitant]
     Route: 048
  11. INSULIN LISPRO [Concomitant]
  12. ALLOPURINOL [Concomitant]
     Route: 048
  13. PRILOSEC [Concomitant]
     Route: 048
  14. PREDNISONE [Concomitant]
     Route: 048
  15. VICODIN [Concomitant]
     Dosage: 5/500 STRENGTH.1  DF= 1 TO 2 TABS
     Route: 048
  16. ONDANSETRON [Concomitant]
     Indication: VOMITING
  17. ONDANSETRON [Concomitant]
     Indication: NAUSEA

REACTIONS (1)
  - COLITIS [None]
